FAERS Safety Report 10912240 (Version 2)
Quarter: 2015Q2

REPORT INFORMATION
  Report Type: Spontaneous
  Country: KR (occurrence: KR)
  Receive Date: 20150313
  Receipt Date: 20150508
  Transmission Date: 20150821
  Serious: Yes (Hospitalization)
  Sender: FDA-Public Use
  Company Number: KR-AMGEN-KORCT2015022938

PATIENT
  Age: 70 Year
  Sex: Male

DRUGS (13)
  1. ASPIRIN                            /00002701/ [Concomitant]
     Active Substance: ASPIRIN
     Dosage: 100 MG, UNK
     Route: 048
     Dates: start: 20060310
  2. REGPARA [Suspect]
     Active Substance: CINACALCET HYDROCHLORIDE
     Indication: HYPERPARATHYROIDISM SECONDARY
     Dosage: 25 MG, QD
     Route: 048
     Dates: start: 20150127
  3. FOLIC ACID. [Concomitant]
     Active Substance: FOLIC ACID
     Dosage: 1 MG, UNK
     Route: 048
     Dates: start: 20090410
  4. VYTORIN [Concomitant]
     Active Substance: EZETIMIBE\SIMVASTATIN
     Dosage: 10 MG, UNK
     Route: 048
     Dates: start: 20110419
  5. PHOSBLOCK [Suspect]
     Active Substance: FERRIC HYDROXIDE
     Indication: CHRONIC KIDNEY DISEASE
     Dosage: 2400 MG, QD
     Route: 048
     Dates: start: 20140402, end: 20150204
  6. NIFERON [Concomitant]
     Dosage: 80 MG, UNK
     Route: 048
     Dates: start: 20140525
  7. PREGREL [Concomitant]
     Dosage: 75 MG, UNK
     Route: 048
     Dates: start: 20120807
  8. GASMOTIN [Concomitant]
     Active Substance: MOSAPRIDE CITRATE
     Dosage: 10 MG, UNK
     Route: 048
     Dates: start: 20100406
  9. NESP [Suspect]
     Active Substance: DARBEPOETIN ALFA
     Indication: ANAEMIA
     Dosage: 60 MUG, Q5DAYS
     Route: 058
     Dates: start: 20140402
  10. FEROBA [Concomitant]
     Dosage: 512 MG, UNK
     Route: 048
     Dates: start: 20080620
  11. ALLEGRA [Concomitant]
     Active Substance: FEXOFENADINE HYDROCHLORIDE
     Dosage: 120 MG, UNK
     Route: 048
     Dates: start: 20120314
  12. BEECOM [Concomitant]
     Dosage: 1TAB
     Route: 048
     Dates: start: 20090410
  13. ISOTRIL [Concomitant]
     Dosage: 60 MG, UNK
     Route: 048
     Dates: start: 20060310

REACTIONS (1)
  - Bronchiolitis [Recovered/Resolved]

NARRATIVE: CASE EVENT DATE: 20150204
